FAERS Safety Report 9783197 (Version 5)
Quarter: 2014Q2

REPORT INFORMATION
  Report Type: Report from Study
  Country: IE (occurrence: IE)
  Receive Date: 20131226
  Receipt Date: 20140417
  Transmission Date: 20141212
  Serious: Yes (Hospitalization)
  Sender: FDA-Public Use
  Company Number: IE-SA-2013SA131890

PATIENT
  Age: 49 Year
  Sex: Male

DRUGS (22)
  1. AFLIBERCEPT [Suspect]
     Indication: COLORECTAL CANCER METASTATIC
     Route: 042
     Dates: start: 20131023, end: 20131023
  2. AFLIBERCEPT [Suspect]
     Indication: COLORECTAL CANCER METASTATIC
     Route: 042
     Dates: start: 20131202, end: 20131202
  3. 5-FU [Suspect]
     Indication: COLORECTAL CANCER METASTATIC
     Route: 040
     Dates: start: 20131024, end: 20131024
  4. 5-FU [Suspect]
     Indication: COLORECTAL CANCER METASTATIC
     Route: 041
     Dates: start: 20131024, end: 20131024
  5. 5-FU [Suspect]
     Indication: COLORECTAL CANCER METASTATIC
     Route: 041
     Dates: start: 20131202, end: 20131202
  6. 5-FU [Suspect]
     Indication: COLORECTAL CANCER METASTATIC
     Route: 040
     Dates: start: 20131202, end: 20131202
  7. IRINOTECAN [Suspect]
     Indication: COLORECTAL CANCER METASTATIC
     Route: 042
     Dates: start: 20131023, end: 20131023
  8. IRINOTECAN [Suspect]
     Indication: COLORECTAL CANCER METASTATIC
     Route: 042
     Dates: start: 20131202, end: 20131202
  9. LEUCOVORIN [Suspect]
     Indication: COLORECTAL CANCER METASTATIC
     Route: 042
     Dates: start: 20131024, end: 20131024
  10. LEUCOVORIN [Suspect]
     Indication: COLORECTAL CANCER METASTATIC
     Route: 042
     Dates: start: 20131202, end: 20131202
  11. NEXIUM [Concomitant]
     Dates: start: 201305
  12. ANALGESICS [Concomitant]
     Dates: start: 201307
  13. SENOKOT /USA/ [Concomitant]
     Dates: start: 201310
  14. MAXOLON [Concomitant]
     Dates: start: 201305
  15. ANTICHOLINERGICS [Concomitant]
     Dates: start: 20131023
  16. LOPERAMIDE [Concomitant]
     Dates: start: 20131125
  17. SEROTONIN ANTAGONISTS [Concomitant]
     Dates: start: 20131023
  18. CORTICOSTEROIDS [Concomitant]
     Dates: start: 20131023
  19. VALOID [Concomitant]
     Dates: start: 20131024
  20. NOZINAN [Concomitant]
     Dates: start: 20131109
  21. DEXAMETHASONE [Concomitant]
     Indication: PROPHYLAXIS
     Route: 048
     Dates: start: 20131202, end: 20131202
  22. DEXAMETHASONE [Concomitant]
     Indication: PROPHYLAXIS
     Route: 048
     Dates: start: 20131203, end: 20131204

REACTIONS (4)
  - Diarrhoea [Recovered/Resolved]
  - Vomiting [Recovered/Resolved]
  - Fatigue [Recovered/Resolved]
  - Hiccups [Recovered/Resolved]
